FAERS Safety Report 6122676-3 (Version None)
Quarter: 2009Q1

REPORT INFORMATION
  Report Type: 
  Country: None (occurrence: None)
  Receive Date: 20090318
  Receipt Date: 20090313
  Transmission Date: 20090719
  Serious: Yes (Hospitalization)
  Sender: FDA-Public Use
  Company Number: JP-BRISTOL-MYERS SQUIBB COMPANY-14545537

PATIENT
  Age: 63 Year
  Sex: Male

DRUGS (4)
  1. BARACLUDE [Suspect]
     Indication: HEPATITIS B
     Route: 048
     Dates: start: 20061219
  2. GASTER [Concomitant]
     Route: 048
     Dates: start: 20061219
  3. RENIVACE [Concomitant]
     Route: 048
     Dates: start: 20061219
  4. GASTROM [Concomitant]
     Route: 048
     Dates: start: 20061219

REACTIONS (1)
  - HEPATIC NEOPLASM MALIGNANT [None]
